FAERS Safety Report 7445821-6 (Version None)
Quarter: 2011Q2

REPORT INFORMATION
  Report Type: 
  Country: None (occurrence: None)
  Receive Date: 20110429
  Receipt Date: 20110418
  Transmission Date: 20111010
  Serious: Yes (Hospitalization, Other)
  Sender: FDA-Public Use
  Company Number: PHHY2011US32591

PATIENT
  Age: 60 Year
  Sex: Male

DRUGS (2)
  1. ALISKIREN [Suspect]
  2. CLONIDINE [Suspect]

REACTIONS (17)
  - THROMBOTIC THROMBOCYTOPENIC PURPURA [None]
  - HAEMATURIA [None]
  - BLOOD CREATININE INCREASED [None]
  - TONGUE HAEMATOMA [None]
  - DYSPNOEA [None]
  - HYPERTENSION [None]
  - ANAEMIA [None]
  - CHEST PAIN [None]
  - BLOOD BILIRUBIN INCREASED [None]
  - AUTOIMMUNE THROMBOCYTOPENIA [None]
  - THROMBOCYTOPENIA [None]
  - GINGIVAL BLEEDING [None]
  - PYREXIA [None]
  - HAEMORRHAGE INTRACRANIAL [None]
  - MYOCARDIAL INFARCTION [None]
  - MENTAL STATUS CHANGES [None]
  - BLOOD LACTATE DEHYDROGENASE INCREASED [None]
